FAERS Safety Report 10370109 (Version 2)
Quarter: 2014Q3

REPORT INFORMATION
  Report Type: Spontaneous
  Country: US (occurrence: US)
  Receive Date: 20140808
  Receipt Date: 20140901
  Transmission Date: 20150326
  Serious: No
  Sender: FDA-Public Use
  Company Number: US-009507513-1408USA003907

PATIENT
  Age: 61 Year
  Sex: Male

DRUGS (1)
  1. NASONEX [Suspect]
     Active Substance: MOMETASONE FUROATE
     Indication: RHINITIS
     Dosage: 50 MICROGRAM, BID/TWO PUFFS A DAY
     Route: 045
     Dates: start: 201404, end: 201407

REACTIONS (2)
  - Product odour abnormal [Unknown]
  - Nasal inflammation [Recovering/Resolving]

NARRATIVE: CASE EVENT DATE: 201407
